FAERS Safety Report 20696106 (Version 4)
Quarter: 2022Q3

REPORT INFORMATION
  Report Type: Spontaneous
  Country: US (occurrence: US)
  Receive Date: 20220411
  Receipt Date: 20220923
  Transmission Date: 20221027
  Serious: Yes (Hospitalization, Other)
  Sender: FDA-Public Use
  Company Number: US-PFIZER INC-202200532547

PATIENT
  Age: 57 Year
  Sex: Female

DRUGS (5)
  1. XELJANZ XR [Suspect]
     Active Substance: TOFACITINIB CITRATE
     Indication: Rheumatoid arthritis
     Dosage: 11 MG, 1X/DAY
     Route: 048
     Dates: start: 202203
  2. XELJANZ XR [Suspect]
     Active Substance: TOFACITINIB CITRATE
     Indication: Psoriasis
     Dosage: 11 MG, 1X/DAY
     Route: 048
     Dates: start: 20220724
  3. CELEBREX [Concomitant]
     Active Substance: CELECOXIB
     Dosage: UNK
  4. NORCO [Concomitant]
     Active Substance: ACETAMINOPHEN\HYDROCODONE BITARTRATE
     Dosage: UNK
  5. METHOTREXATE [Concomitant]
     Active Substance: METHOTREXATE
     Dosage: UNK

REACTIONS (7)
  - Cerebrovascular accident [Unknown]
  - Back pain [Not Recovered/Not Resolved]
  - Arthralgia [Unknown]
  - Joint stiffness [Unknown]
  - Condition aggravated [Unknown]
  - Gait disturbance [Unknown]
  - Pain [Unknown]

NARRATIVE: CASE EVENT DATE: 20220509
